FAERS Safety Report 5323540-X (Version None)
Quarter: 2007Q2

REPORT INFORMATION
  Report Type: 
  Country: None (occurrence: None)
  Receive Date: 20070514
  Receipt Date: 20070504
  Transmission Date: 20071010
  Serious: Yes (Hospitalization)
  Sender: FDA-Public Use
  Company Number: US-AMGEN-STX223405

PATIENT
  Sex: Female

DRUGS (1)
  1. ENBREL [Suspect]
     Indication: RHEUMATOID ARTHRITIS
     Route: 058
     Dates: start: 20030501

REACTIONS (8)
  - CELLULITIS [None]
  - CRANIOPLASTY [None]
  - CRANIOTOMY [None]
  - INFECTION [None]
  - INJECTION SITE IRRITATION [None]
  - MENINGIOMA [None]
  - SINUS OPERATION [None]
  - THERAPEUTIC RESPONSE DECREASED [None]
